FAERS Safety Report 15955709 (Version 1)
Quarter: 2019Q1

REPORT INFORMATION
  Report Type: Spontaneous
  Country: US (occurrence: US)
  Receive Date: 20190212
  Receipt Date: 20190212
  Transmission Date: 20190417
  Serious: No
  Sender: FDA-Public Use
  Company Number: None

PATIENT
  Age: 55 Year
  Sex: Female
  Weight: 67.4 kg

DRUGS (1)
  1. RITUXIMAB. [Suspect]
     Active Substance: RITUXIMAB
     Indication: RHEUMATOID ARTHRITIS
     Dosage: ?          OTHER FREQUENCY:Q14D X 2 DOSES;?
     Route: 042
     Dates: start: 20190212, end: 20190212

REACTIONS (4)
  - Pruritus [None]
  - Cough [None]
  - Condition aggravated [None]
  - Erythema [None]

NARRATIVE: CASE EVENT DATE: 20190212
